FAERS Safety Report 20242252 (Version 1)
Quarter: 2021Q4

REPORT INFORMATION
  Report Type: Spontaneous
  Country: CA (occurrence: CA)
  Receive Date: 20211228
  Receipt Date: 20211228
  Transmission Date: 20220303
  Serious: Yes (Other)
  Sender: FDA-Public Use
  Company Number: CA-PFIZER INC-202101850176

PATIENT
  Age: 36 Year
  Sex: Male
  Weight: 56.69 kg

DRUGS (4)
  1. METHOTREXATE SODIUM [Suspect]
     Active Substance: METHOTREXATE SODIUM
     Dosage: 12.5 MG, WEEKLY
     Route: 048
  2. VEDOLIZUMAB [Concomitant]
     Active Substance: VEDOLIZUMAB
     Indication: Colitis ulcerative
     Dosage: 10 MG, 2X/DAY
     Route: 048
  3. ENTYVIO [Concomitant]
     Active Substance: VEDOLIZUMAB
     Dosage: EVERY 4 WEEKS
  4. BETAZOLE [Concomitant]
     Active Substance: BETAZOLE
     Dosage: EVERY OTHER NIGHT

REACTIONS (5)
  - Haematochezia [Unknown]
  - Condition aggravated [Unknown]
  - Frequent bowel movements [Unknown]
  - Inflammation [Unknown]
  - Ulcer [Unknown]

NARRATIVE: CASE EVENT DATE: 20211216
